FAERS Safety Report 4680121-9 (Version None)
Quarter: 2005Q2

REPORT INFORMATION
  Report Type: 
  Country: None (occurrence: None)
  Receive Date: 20050531
  Receipt Date: 20050520
  Transmission Date: 20051028
  Serious: Yes (Death, Hospitalization)
  Sender: FDA-Public Use
  Company Number: 2005-05-1261

PATIENT
  Sex: Female

DRUGS (2)
  1. CELESTENE (BETAMETHASONE SODIUM PHOSPHATE) INJECTABLE SOLUTION ^LIKE C [Suspect]
     Indication: NEONATAL RESPIRATORY DISTRESS SYNDROME
     Dates: start: 20050101
  2. CELESTENE (BETAMETHASONE SODIUM PHOSPHATE) INJECTABLE SOLUTION ^LIKE C [Suspect]
     Indication: PROPHYLAXIS
     Dates: start: 20050101

REACTIONS (1)
  - DRUG EXPOSURE DURING PREGNANCY [None]
